FAERS Safety Report 8081726-8 (Version None)
Quarter: 2012Q1

REPORT INFORMATION
  Report Type: 
  Country: None (occurrence: None)
  Receive Date: 20120130
  Receipt Date: 20120125
  Transmission Date: 20120608
  Serious: Yes (Other)
  Sender: FDA-Public Use
  Company Number: CY-ASTRAZENECA-2012SE05696

PATIENT
  Age: 48 Year
  Sex: Male

DRUGS (2)
  1. CRESTOR [Suspect]
     Indication: HYPERCHOLESTEROLAEMIA
     Route: 048
     Dates: start: 20100701
  2. ASPIRIN [Concomitant]
     Indication: PROPHYLAXIS
     Route: 048

REACTIONS (1)
  - LYMPHOCYTOSIS [None]
